FAERS Safety Report 23097337 (Version 1)
Quarter: 2023Q4

REPORT INFORMATION
  Report Type: Spontaneous
  Country: US (occurrence: None)
  Receive Date: 20231019
  Receipt Date: 20231019
  Transmission Date: 20240110
  Serious: Yes (Hospitalization)
  Sender: FDA-Public Use
  Company Number: None

PATIENT
  Age: 76 Year
  Sex: Male

DRUGS (1)
  1. SPIRONOLACTONE [Suspect]
     Active Substance: SPIRONOLACTONE
     Dates: start: 20230123, end: 20230303

REACTIONS (5)
  - Pain in extremity [None]
  - Hypoaesthesia [None]
  - Hyperkalaemia [None]
  - Therapy cessation [None]
  - Acute kidney injury [None]

NARRATIVE: CASE EVENT DATE: 20230303
